FAERS Safety Report 8785728 (Version 2)
Quarter: 2012Q4

REPORT INFORMATION
  Report Type: Report from Study
  Country: KR (occurrence: KR)
  Receive Date: 20120914
  Receipt Date: 20121228
  Transmission Date: 20130627
  Serious: Yes (Hospitalization)
  Sender: FDA-Public Use
  Company Number: KR-009507513-1204USA04510

PATIENT
  Age: 13 Year
  Sex: Male
  Weight: 50.4 kg

DRUGS (10)
  1. APREPITANT [Suspect]
     Indication: PROPHYLAXIS OF NAUSEA AND VOMITING
     Dosage: 125 mg, Once
     Dates: start: 20120227, end: 20120227
  2. APREPITANT [Suspect]
     Dosage: 80 mg, Once
     Dates: start: 20120228, end: 20120229
  3. APREPITANT [Suspect]
     Dosage: 125 mg, Once
     Dates: start: 20120320, end: 20120320
  4. APREPITANT [Suspect]
     Dosage: 80 mg, Once
     Dates: start: 20120321, end: 20120322
  5. ONDANSETRON [Suspect]
     Indication: PROPHYLAXIS OF NAUSEA AND VOMITING
     Dosage: 8 mg, qd
     Dates: start: 20120201, end: 20120205
  6. ONDANSETRON [Suspect]
     Dosage: 8 mg, qd
     Dates: start: 20120227, end: 20120229
  7. ONDANSETRON [Suspect]
     Dosage: 8 mg, qd
     Dates: start: 20120320, end: 20120324
  8. ETOPOSIDE [Suspect]
     Indication: CHEMOTHERAPY
     Dosage: 149 mg, qd
     Route: 042
     Dates: start: 20120320, end: 20120324
  9. DEXAMETHASONE [Concomitant]
     Dosage: 0.6 ml, qd
     Dates: start: 20120201, end: 20120205
  10. CARBOPLATIN [Concomitant]
     Indication: CHEMOTHERAPY
     Dosage: 298 mg, qd
     Route: 042
     Dates: start: 20120320, end: 20120321

REACTIONS (1)
  - Febrile neutropenia [Recovered/Resolved]
